FAERS Safety Report 25249319 (Version 1)
Quarter: 2025Q2

REPORT INFORMATION
  Report Type: Spontaneous
  Country: CN (occurrence: CN)
  Receive Date: 20250429
  Receipt Date: 20250429
  Transmission Date: 20250716
  Serious: Yes (Hospitalization, Other)
  Sender: BAXTER
  Company Number: None

PATIENT
  Age: 21 Year
  Sex: Female
  Weight: 47.5 kg

DRUGS (6)
  1. CYCLOPHOSPHAMIDE [Suspect]
     Active Substance: CYCLOPHOSPHAMIDE
     Indication: Rhabdomyosarcoma
     Dosage: 1 G, QD
     Route: 041
     Dates: start: 20250326, end: 20250326
  2. SODIUM CHLORIDE [Suspect]
     Active Substance: SODIUM CHLORIDE
     Indication: Medication dilution
     Dosage: 250 ML,QD, 0.9% SODIUM CHLORIDE INJECTION WITH DACTINOMYCIN
     Route: 041
     Dates: start: 20250326, end: 20250326
  3. SODIUM CHLORIDE [Suspect]
     Active Substance: SODIUM CHLORIDE
     Dosage: 40 ML,QD, 0.9% SODIUM CHLORIDE INJECTION WITH VINCRISTINE SULFATE
     Route: 041
     Dates: start: 20250326, end: 20250326
  4. SODIUM CHLORIDE [Suspect]
     Active Substance: SODIUM CHLORIDE
     Dosage: 200 ML, QD, 0.9% SODIUM CHLORIDE INJECTION WITH CYCLOPHOSPHAMIDE
     Route: 041
     Dates: start: 20250326, end: 20250326
  5. DACTINOMYCIN [Suspect]
     Active Substance: DACTINOMYCIN
     Indication: Rhabdomyosarcoma
     Dosage: 1 MG, QD,  INTRAVENOUS PUMP DRIP
     Route: 041
     Dates: start: 20250326, end: 20250326
  6. VINCRISTINE SULFATE [Suspect]
     Active Substance: VINCRISTINE SULFATE
     Indication: Rhabdomyosarcoma
     Dosage: 2 MG, QD
     Route: 041
     Dates: start: 20250326, end: 20250326

REACTIONS (3)
  - White blood cell count decreased [Recovering/Resolving]
  - Neutrophil count decreased [Recovering/Resolving]
  - Myelosuppression [Recovering/Resolving]

NARRATIVE: CASE EVENT DATE: 20250330
